FAERS Safety Report 6945048-8 (Version None)
Quarter: 2010Q3

REPORT INFORMATION
  Report Type: 
  Country: None (occurrence: None)
  Receive Date: 20100827
  Receipt Date: 20100812
  Transmission Date: 20110219
  Serious: Yes (Hospitalization)
  Sender: FDA-Public Use
  Company Number: PHHY2010US54344

PATIENT
  Sex: Female

DRUGS (12)
  1. EXTAVIA [Suspect]
     Indication: MULTIPLE SCLEROSIS
     Dosage: 0.25 MG, QOD
     Route: 058
     Dates: start: 20100326
  2. ASPIRIN [Concomitant]
     Dosage: 81 MG, QD
  3. VITAMIN B-12 [Concomitant]
     Dosage: 1000 UG, QD
  4. AMARYL [Concomitant]
     Dosage: 25 MG, QD
  5. GLIPIZIDE [Concomitant]
     Dosage: 2 PILLS BID
  6. KLONOPIN [Concomitant]
     Dosage: 1 MG, QD
  7. NEURONTIN [Concomitant]
     Dosage: 2 CAPS
  8. CALCIUM WITH VITAMIN D [Concomitant]
     Dosage: 1 CAPSULE TID
  9. CAPTOPRIL [Concomitant]
     Dosage: 0.25 MG, TID
  10. ZOCOR [Concomitant]
  11. TYL-SINUS [Concomitant]
     Dosage: 2 PILLS
  12. PAXIL [Concomitant]

REACTIONS (6)
  - ARTERIAL OCCLUSIVE DISEASE [None]
  - ARTERIAL STENT INSERTION [None]
  - CONTUSION [None]
  - DIZZINESS [None]
  - FALL [None]
  - FATIGUE [None]
